FAERS Safety Report 9165723 (Version 2)
Quarter: 2013Q2

REPORT INFORMATION
  Report Type: Spontaneous
  Country: DE (occurrence: DE)
  Receive Date: 20130315
  Receipt Date: 20130510
  Transmission Date: 20140414
  Serious: Yes (Other)
  Sender: FDA-Public Use
  Company Number: DE-ELI_LILLY_AND_COMPANY-DE201303000699

PATIENT
  Sex: Female

DRUGS (4)
  1. FORSTEO [Suspect]
     Indication: OSTEOPOROSIS
     Dosage: UNK, QD
     Route: 058
     Dates: start: 20121209
  2. CORTISONE [Concomitant]
     Dosage: 30 MG, UNK
  3. CALCIUM [Concomitant]
  4. VITAMIN D [Concomitant]

REACTIONS (7)
  - Loss of consciousness [Not Recovered/Not Resolved]
  - Pubis fracture [Not Recovered/Not Resolved]
  - Fall [Recovered/Resolved]
  - Febrile infection [Not Recovered/Not Resolved]
  - Asthma [Not Recovered/Not Resolved]
  - Pain [Not Recovered/Not Resolved]
  - Gait disturbance [Not Recovered/Not Resolved]
